FAERS Safety Report 6287859-0 (Version None)
Quarter: 2009Q3

REPORT INFORMATION
  Report Type: 
  Country: None (occurrence: None)
  Receive Date: 20090727
  Receipt Date: 20090727
  Transmission Date: 20100115
  Serious: Yes (Life-Threatening)
  Sender: FDA-Public Use
  Company Number: None

PATIENT
  Age: 20 Year
  Sex: Female

DRUGS (1)
  1. PROPOFOL [Suspect]
     Indication: ENDOSCOPY
     Dosage: 290 MG ONE DOSE - IV; ONE DOSE
     Route: 042

REACTIONS (12)
  - ANTICHOLINERGIC SYNDROME [None]
  - ANXIETY [None]
  - APNOEA [None]
  - CHEST PAIN [None]
  - DELIRIUM [None]
  - MOVEMENT DISORDER [None]
  - MUSCLE RIGIDITY [None]
  - MUSCLE TWITCHING [None]
  - POSTURING [None]
  - PROPOFOL INFUSION SYNDROME [None]
  - STRIDOR [None]
  - TACHYCARDIA [None]
